FAERS Safety Report 5056971-6 (Version None)
Quarter: 2006Q3

REPORT INFORMATION
  Report Type: 
  Country: None (occurrence: None)
  Receive Date: 20060721
  Receipt Date: 20060616
  Transmission Date: 20061208
  Serious: Yes (Disabling)
  Sender: FDA-Public Use
  Company Number: PHRM2006FR01840

PATIENT
  Age: 50 Year
  Sex: Male

DRUGS (2)
  1. ZOMETA [Suspect]
     Indication: BONE PAIN
     Dosage: 4 MG, QMO
     Route: 042
     Dates: start: 20030724
  2. AREDIA [Suspect]
     Indication: BONE PAIN
     Route: 042
     Dates: start: 20020702, end: 20030620

REACTIONS (17)
  - ABSCESS JAW [None]
  - BONE DEBRIDEMENT [None]
  - BONE DISORDER [None]
  - BONE EROSION [None]
  - FISTULA [None]
  - FISTULA REPAIR [None]
  - HYPOAESTHESIA TEETH [None]
  - INFECTION [None]
  - INFLAMMATION [None]
  - MANDIBULECTOMY [None]
  - OSTEONECROSIS [None]
  - PARAESTHESIA [None]
  - PATHOLOGICAL FRACTURE [None]
  - PLASTIC SURGERY [None]
  - PRIMARY SEQUESTRUM [None]
  - PURULENT DISCHARGE [None]
  - TOOTH DISORDER [None]
